FAERS Safety Report 21878533 (Version 1)
Quarter: 2023Q1

REPORT INFORMATION
  Report Type: Spontaneous
  Country: US (occurrence: US)
  Receive Date: 20230118
  Receipt Date: 20230118
  Transmission Date: 20230417
  Serious: No
  Sender: FDA-Public Use
  Company Number: US-SA-SAC20230118000055

PATIENT
  Age: 15 Year
  Sex: Female
  Weight: 138.9 kg

DRUGS (1)
  1. DUPIXENT [Suspect]
     Active Substance: DUPILUMAB
     Indication: Dermatitis atopic
     Dosage: 300 MG, QOW
     Route: 058
     Dates: start: 20221128

REACTIONS (3)
  - Sleep disorder [Not Recovered/Not Resolved]
  - Dry skin [Recovered/Resolved]
  - Condition aggravated [Not Recovered/Not Resolved]
